FAERS Safety Report 12722031 (Version 1)
Quarter: 2016Q3

REPORT INFORMATION
  Report Type: Spontaneous
  Country: US (occurrence: US)
  Receive Date: 20160907
  Receipt Date: 20160907
  Transmission Date: 20161109
  Serious: No
  Sender: FDA-Public Use
  Company Number: US-DRREDDYS-USA/USA/16/0080963

PATIENT
  Sex: Female

DRUGS (1)
  1. ATORVASTATIN TABLETS 80 MG (202357) [Suspect]
     Active Substance: ATORVASTATIN
     Indication: PRODUCT USED FOR UNKNOWN INDICATION
     Route: 048
     Dates: start: 20160620

REACTIONS (2)
  - Wrong technique in product usage process [Unknown]
  - Product size issue [Unknown]
